FAERS Safety Report 22661386 (Version 1)
Quarter: 2023Q2

REPORT INFORMATION
  Report Type: Spontaneous
  Country: NO (occurrence: NO)
  Receive Date: 20230630
  Receipt Date: 20230630
  Transmission Date: 20230722
  Serious: No
  Sender: FDA-Public Use
  Company Number: NO-JAZZ-2022-NO-033374

PATIENT
  Sex: Male

DRUGS (2)
  1. CANNABIDIOL [Suspect]
     Active Substance: CANNABIDIOL
     Indication: Lennox-Gastaut syndrome
     Dosage: 7.5 MILLIGRAM/KILOGRAM
  2. CANNABIDIOL [Suspect]
     Active Substance: CANNABIDIOL
     Dosage: 5 MILLIGRAM/KILOGRAM

REACTIONS (1)
  - Thinking abnormal [Recovered/Resolved]
